FAERS Safety Report 15643804 (Version 2)
Quarter: 2018Q4

REPORT INFORMATION
  Report Type: Spontaneous
  Country: JP (occurrence: JP)
  Receive Date: 20181121
  Receipt Date: 20181217
  Transmission Date: 20190205
  Serious: Yes (Other)
  Sender: FDA-Public Use
  Company Number: JP-ASTRAZENECA-2018SF52401

PATIENT
  Age: 71 Year
  Sex: Male
  Weight: 55 kg

DRUGS (12)
  1. THYRADIN-S [Concomitant]
     Active Substance: LEVOTHYROXINE
     Route: 048
  2. BAYASPIRIN [Concomitant]
     Active Substance: ASPIRIN
     Route: 048
  3. BROTIZOLAM [Concomitant]
     Active Substance: BROTIZOLAM
     Route: 048
  4. ZOLPIDEM [Concomitant]
     Active Substance: ZOLPIDEM\ZOLPIDEM TARTRATE
     Route: 048
  5. ROSUVASTATIN. [Suspect]
     Active Substance: ROSUVASTATIN
     Indication: HYPERLIPIDAEMIA
     Route: 048
     Dates: start: 20180913, end: 20180925
  6. THYRADIN-S [Concomitant]
     Active Substance: LEVOTHYROXINE
     Route: 048
  7. LUPRAC [Concomitant]
     Active Substance: TORSEMIDE
     Route: 048
  8. VILDAGLIPTIN [Concomitant]
     Active Substance: VILDAGLIPTIN
     Route: 048
  9. ROZEREM [Concomitant]
     Active Substance: RAMELTEON
     Route: 048
  10. CRESTOR [Suspect]
     Active Substance: ROSUVASTATIN CALCIUM
     Indication: HYPERLIPIDAEMIA
     Route: 048
     Dates: start: 20180926, end: 20181002
  11. CORTRIL [Concomitant]
     Active Substance: HYDROCORTISONE
     Route: 048
  12. EFIENT [Concomitant]
     Active Substance: PRASUGREL HYDROCHLORIDE
     Route: 048

REACTIONS (2)
  - Pruritus [Recovering/Resolving]
  - Erythema multiforme [Recovering/Resolving]

NARRATIVE: CASE EVENT DATE: 20181001
